FAERS Safety Report 6383531-7 (Version None)
Quarter: 2009Q4

REPORT INFORMATION
  Report Type: 
  Country: None (occurrence: None)
  Receive Date: 20091001
  Receipt Date: 20070705
  Transmission Date: 20100525
  Serious: Yes (Other)
  Sender: FDA-Public Use
  Company Number: US-ASTRAZENECA-2006UW12302

PATIENT
  Age: 54 Year
  Sex: Female
  Weight: 79.4 kg

DRUGS (21)
  1. SEROQUEL [Suspect]
     Indication: DEPRESSION
     Dosage: 100 MG-200 MG
     Route: 048
     Dates: start: 20011211, end: 20061117
  2. SEROQUEL [Suspect]
     Indication: ANXIETY
     Dosage: 100 MG-200 MG
     Route: 048
     Dates: start: 20011211, end: 20061117
  3. SEROQUEL [Suspect]
     Indication: INSOMNIA
     Dosage: 100 MG-200 MG
     Route: 048
     Dates: start: 20011211, end: 20061117
  4. SEROQUEL [Suspect]
     Route: 048
  5. SEROQUEL [Suspect]
     Route: 048
  6. SEROQUEL [Suspect]
     Route: 048
  7. LITHIUM [Suspect]
     Dosage: 300 M
     Dates: start: 20020123, end: 20040514
  8. THORAZINE [Concomitant]
  9. DEPAKOTE EXTENDED RELEASE [Concomitant]
     Dosage: 500 MG-1000 MG
     Dates: start: 20010105
  10. LAMICTAL [Concomitant]
     Dosage: 25 MG-50 MG
     Dates: start: 20040427
  11. LASIX [Concomitant]
     Dates: start: 20010105
  12. NIFEDIPINE [Concomitant]
     Dosage: 30 MG
     Dates: start: 20020108
  13. GLUCOVANCE [Concomitant]
     Dosage: 2.5/500 BID
     Dates: start: 20011216
  14. ZOLOFT [Concomitant]
     Dates: start: 20021026
  15. LIPITOR [Concomitant]
     Dates: start: 20010105
  16. WELLBUTRIN SR [Concomitant]
     Dates: start: 20020108
  17. VALIUM [Concomitant]
     Dosage: 5 MG-10 MG
     Dates: start: 20010105
  18. CLONIDINE HCL [Concomitant]
     Dates: start: 20010105
  19. LOPRESSOR [Concomitant]
     Dosage: 50 MG-100 MG
     Dates: start: 20010105
  20. VASOTEC [Concomitant]
     Dosage: 5 MG-20 MG
     Dates: start: 20010105
  21. TRICHLOR [Concomitant]
     Dosage: 54 QD
     Dates: start: 20021026

REACTIONS (10)
  - BLOOD TRIGLYCERIDES INCREASED [None]
  - DIABETES MELLITUS [None]
  - DIABETES MELLITUS INADEQUATE CONTROL [None]
  - DIABETIC NEPHROPATHY [None]
  - DIABETIC NEUROPATHY [None]
  - MOBILITY DECREASED [None]
  - MULTIPLE INJURIES [None]
  - OEDEMA PERIPHERAL [None]
  - RENAL IMPAIRMENT [None]
  - TYPE 2 DIABETES MELLITUS [None]
